FAERS Safety Report 6412519-2 (Version None)
Quarter: 2009Q4

REPORT INFORMATION
  Report Type: 
  Country: None (occurrence: None)
  Receive Date: 20091023
  Receipt Date: 20090626
  Transmission Date: 20100525
  Serious: Yes (Other)
  Sender: FDA-Public Use
  Company Number: US-BRISTOL-MYERS SQUIBB COMPANY-14666200

PATIENT
  Age: 54 Year
  Sex: Female
  Weight: 68 kg

DRUGS (4)
  1. KENALOG-40 [Suspect]
     Indication: PAIN
     Dosage: KENALO 40 MG/ML FREQ:ONE TIME
     Route: 008
     Dates: start: 20090603
  2. ISOVUE-128 [Suspect]
     Indication: PAIN
     Dosage: FREQ : ONE TIME DOSE;ISOVUE 300
     Route: 008
     Dates: start: 20090603
  3. BUPIVACAINE [Suspect]
     Dosage: BUPIVACAINE 0.5 PERCENT;HOSPIRA
     Dates: start: 20090603
  4. LIDOCAINE [Suspect]
     Dates: start: 20090603

REACTIONS (5)
  - BLOOD PRESSURE DECREASED [None]
  - FEELING ABNORMAL [None]
  - HEART RATE DECREASED [None]
  - HYPOAESTHESIA [None]
  - LOSS OF CONSCIOUSNESS [None]
